FAERS Safety Report 14537170 (Version 1)
Quarter: 2018Q1

REPORT INFORMATION
  Report Type: Spontaneous
  Country: US (occurrence: US)
  Receive Date: 20180215
  Receipt Date: 20180215
  Transmission Date: 20180509
  Serious: No
  Sender: FDA-Public Use
  Company Number: US-MYLANLABS-2018M1008722

PATIENT
  Sex: Female

DRUGS (2)
  1. LIDOCAINE PATCH [Suspect]
     Active Substance: LIDOCAINE
     Indication: FIBROMYALGIA
     Dosage: UNK
     Route: 003
  2. LIDOCAINE PATCH [Suspect]
     Active Substance: LIDOCAINE
     Indication: RHEUMATOID ARTHRITIS

REACTIONS (8)
  - Product quality issue [Recovering/Resolving]
  - Feeling abnormal [Not Recovered/Not Resolved]
  - Product adhesion issue [Recovering/Resolving]
  - Application site laceration [Recovering/Resolving]
  - Off label use [Not Recovered/Not Resolved]
  - Insomnia [Recovered/Resolved]
  - Application site erythema [Recovering/Resolving]
  - Application site pain [Recovering/Resolving]
